FAERS Safety Report 5214362-9 (Version None)
Quarter: 2007Q1

REPORT INFORMATION
  Report Type: 
  Country: None (occurrence: None)
  Receive Date: 20070122
  Receipt Date: 20070119
  Transmission Date: 20070707
  Serious: Yes (Life-Threatening, Hospitalization)
  Sender: FDA-Public Use
  Company Number: US-GLAXOSMITHKLINE-A0636336A

PATIENT
  Sex: Male

DRUGS (2)
  1. ARIXTRA [Suspect]
     Indication: DEEP VEIN THROMBOSIS
     Dosage: 7.5MG PER DAY
     Route: 058
  2. UNKNOWN [Concomitant]

REACTIONS (2)
  - COAGULOPATHY [None]
  - DRUG INEFFECTIVE [None]
